FAERS Safety Report 7339804-4 (Version None)
Quarter: 2011Q1

REPORT INFORMATION
  Report Type: 
  Country: None (occurrence: None)
  Receive Date: 20110309
  Receipt Date: 20100114
  Transmission Date: 20110831
  Serious: No
  Sender: FDA-Public Use
  Company Number: US-BAYER-201011436NA

PATIENT
  Sex: Female
  Weight: 70 kg

DRUGS (3)
  1. MULTIVITAMIN [Concomitant]
  2. MIRENA [Suspect]
     Indication: CONTRACEPTION
     Dosage: 20 MCG/24HR, UNK
     Dates: start: 20100104, end: 20100114
  3. HYDROCHLOROTHIAZIDE [Concomitant]

REACTIONS (1)
  - DEVICE EXPULSION [None]
